FAERS Safety Report 18791561 (Version 1)
Quarter: 2021Q1

REPORT INFORMATION
  Report Type: Spontaneous
  Country: US (occurrence: US)
  Receive Date: 20210126
  Receipt Date: 20210126
  Transmission Date: 20210419
  Serious: No
  Sender: FDA-Public Use
  Company Number: US-PERRIGO-19US016377

PATIENT
  Age: 12 Year
  Sex: Female
  Weight: 29.48 kg

DRUGS (1)
  1. IBUPROFEN. [Suspect]
     Active Substance: IBUPROFEN
     Indication: PRODUCT USED FOR UNKNOWN INDICATION
     Dosage: 220 MG, TWICE IN 5 HOURS
     Route: 048
     Dates: start: 20191230, end: 20191230

REACTIONS (2)
  - Abdominal pain upper [Unknown]
  - Extra dose administered [Recovered/Resolved]

NARRATIVE: CASE EVENT DATE: 20191230
